FAERS Safety Report 4435789-9 (Version None)
Quarter: 2004Q3

REPORT INFORMATION
  Report Type: 
  Country: None (occurrence: None)
  Receive Date: 20040826
  Receipt Date: 20040820
  Transmission Date: 20050211
  Serious: Yes (Hospitalization)
  Sender: FDA-Public Use
  Company Number: US-SHR-03-018856

PATIENT
  Age: 62 Year
  Sex: Female
  Weight: 54.4 kg

DRUGS (10)
  1. BETASERON [Suspect]
     Indication: MULTIPLE SCLEROSIS
     Dosage: 8 MIU, EVERY 2D, SUBCUTANEOUS
     Route: 058
     Dates: start: 19910101
  2. SYNTHROID [Concomitant]
  3. METOPROLOL (METOPROLOL) [Concomitant]
  4. HYDROCHLOROTHIAZIDE [Concomitant]
  5. ASPIRIN [Concomitant]
  6. CENTRUM SILVER (MINERALS NOS, TOCOPHERYLACETATE, RETINOL, ZINC, VITAMI [Concomitant]
  7. CALCIUM(CALCIUM) [Concomitant]
  8. VITAMIN E [Concomitant]
  9. VITAMIN B COMPLEX CAP [Concomitant]
  10. VITAMIN C [Concomitant]

REACTIONS (9)
  - AORTIC RUPTURE [None]
  - ASTHENIA [None]
  - BLOOD CALCIUM INCREASED [None]
  - BLOOD PRESSURE INADEQUATELY CONTROLLED [None]
  - BLOOD PRESSURE SYSTOLIC INCREASED [None]
  - FATIGUE [None]
  - HAEMORRHAGE [None]
  - INFECTION [None]
  - URINARY INCONTINENCE [None]
